FAERS Safety Report 4612291-2 (Version None)
Quarter: 2005Q2

REPORT INFORMATION
  Report Type: 
  Country: None (occurrence: None)
  Receive Date: 20050308
  Receipt Date: 20041210
  Transmission Date: 20051028
  Serious: Yes (Other)
  Sender: FDA-Public Use
  Company Number: 2004UW25224

PATIENT
  Age: 85 Year
  Sex: Female
  Weight: 68.038 kg

DRUGS (9)
  1. CRESTOR [Suspect]
     Indication: BLOOD CHOLESTEROL INCREASED
     Dates: start: 20040613
  2. MAXZIDE [Concomitant]
  3. EVISTA [Concomitant]
  4. MIACALCIN [Concomitant]
  5. CENTRUM [Concomitant]
  6. ACIDOPHILUS ^ZYMA^ [Concomitant]
  7. CALTRATE [Concomitant]
  8. VITAMIN D [Concomitant]
  9. ASPIRIN [Concomitant]

REACTIONS (2)
  - DRY SKIN [None]
  - ERYTHEMA [None]
